FAERS Safety Report 16883443 (Version 1)
Quarter: 2019Q4

REPORT INFORMATION
  Report Type: Other
  Country: DE (occurrence: DE)
  Receive Date: 20191004
  Receipt Date: 20191004
  Transmission Date: 20200122
  Serious: Yes (Other)
  Sender: FDA-Public Use
  Company Number: DE-LUPIN PHARMACEUTICALS INC.-2019-06336

PATIENT
  Sex: Female

DRUGS (9)
  1. LEVETIRACETAM. [Suspect]
     Active Substance: LEVETIRACETAM
     Dosage: 3000 MILLIGRAM, QD, BID DOSE
     Route: 065
     Dates: start: 20141215, end: 20141215
  2. LACOSAMIDE EP [Suspect]
     Active Substance: LACOSAMIDE
     Indication: EPILEPSY
     Dosage: 100 MILLIGRAM, BID
     Route: 048
     Dates: start: 201406
  3. LACOSAMIDE EP [Suspect]
     Active Substance: LACOSAMIDE
     Dosage: 100 MILLIGRAM, QD
     Route: 048
  4. LACOSAMIDE EP [Suspect]
     Active Substance: LACOSAMIDE
     Dosage: 50 MILLIGRAM, BID
     Route: 048
     Dates: start: 20141216, end: 20141218
  5. LEVETIRACETAM. [Suspect]
     Active Substance: LEVETIRACETAM
     Dosage: UNK, DOSE INCREASED
     Route: 065
  6. LYRICA [Concomitant]
     Active Substance: PREGABALIN
     Indication: NEUROPATHY PERIPHERAL
     Dosage: UNK, 150-300-300 (TOTAL 750)
     Route: 065
     Dates: start: 2014
  7. LEVETIRACETAM. [Suspect]
     Active Substance: LEVETIRACETAM
     Dosage: 750 MILLIGRAM, BID, DOSE REDUCTION
     Route: 065
  8. LEVETIRACETAM. [Suspect]
     Active Substance: LEVETIRACETAM
     Indication: EPILEPSY
     Dosage: UNK UNK, TID, 1500-500-1500 (TOTAL: 3500 MG)
     Route: 065
  9. LEVETIRACETAM. [Suspect]
     Active Substance: LEVETIRACETAM
     Dosage: UNK UNK, QID, 1000-1000-500-1000
     Route: 065
     Dates: start: 20141216

REACTIONS (5)
  - Overdose [Unknown]
  - Premature delivery [Unknown]
  - Maternal exposure during pregnancy [Unknown]
  - Off label use [Unknown]
  - Maternal exposure during breast feeding [Unknown]

NARRATIVE: CASE EVENT DATE: 20141113
